FAERS Safety Report 9361749 (Version 1)
Quarter: 2013Q2

REPORT INFORMATION
  Report Type: Report from Study
  Country: DE (occurrence: DE)
  Receive Date: 20130621
  Receipt Date: 20130621
  Transmission Date: 20140414
  Serious: Yes (Hospitalization)
  Sender: FDA-Public Use
  Company Number: DE-ABBOTT-13P-062-1105241-00

PATIENT
  Age: 64 Year
  Sex: Female
  Weight: 81.5 kg

DRUGS (16)
  1. ZEMPLAR [Suspect]
     Indication: RENAL FAILURE CHRONIC
     Dosage: 1 DAILY ON DAYS WITHOUT DIALYSIS
  2. ZEMPLAR [Suspect]
     Indication: HYPERPARATHYROIDISM SECONDARY
  3. METOPROLOL SUCCINATE [Concomitant]
     Indication: PRODUCT USED FOR UNKNOWN INDICATION
     Dosage: 2-0-1
  4. CALCET [Concomitant]
     Indication: PRODUCT USED FOR UNKNOWN INDICATION
  5. NOVAMIN [Concomitant]
     Indication: PRODUCT USED FOR UNKNOWN INDICATION
  6. VALSARTAN [Concomitant]
     Indication: PRODUCT USED FOR UNKNOWN INDICATION
     Dosage: 1 DAILY, ON DAYS WITHOUT DIALYSIS
  7. FUROSEMIDE [Concomitant]
     Indication: PRODUCT USED FOR UNKNOWN INDICATION
  8. AGOPTON [Concomitant]
     Indication: PRODUCT USED FOR UNKNOWN INDICATION
  9. MARCUMAR [Concomitant]
     Indication: ATRIAL FIBRILLATION
     Dosage: INR
  10. MARCUMAR [Concomitant]
     Indication: AORTIC VALVE REPLACEMENT
  11. INSULIN [Concomitant]
     Indication: PRODUCT USED FOR UNKNOWN INDICATION
     Dosage: 24-10-26IU
  12. DIGIMERCK [Concomitant]
     Indication: PRODUCT USED FOR UNKNOWN INDICATION
  13. BENSERAZIDE/LEVODOPA (RESTEX RET) [Concomitant]
     Indication: PRODUCT USED FOR UNKNOWN INDICATION
  14. SERTRALINE [Concomitant]
     Indication: PRODUCT USED FOR UNKNOWN INDICATION
  15. LYRICA [Concomitant]
     Indication: PRODUCT USED FOR UNKNOWN INDICATION
  16. ZOPICLONE [Concomitant]
     Indication: PRODUCT USED FOR UNKNOWN INDICATION

REACTIONS (6)
  - Diabetes mellitus [Recovered/Resolved]
  - Depression [Unknown]
  - Pain [Unknown]
  - Asthenia [Unknown]
  - Apathy [Unknown]
  - Diabetic gastropathy [Recovered/Resolved]
